FAERS Safety Report 23415814 (Version 2)
Quarter: 2024Q1

REPORT INFORMATION
  Report Type: Report from Study
  Country: US (occurrence: US)
  Receive Date: 20240118
  Receipt Date: 20240201
  Transmission Date: 20240409
  Serious: Yes (Hospitalization)
  Sender: FDA-Public Use
  Company Number: US-SAREPTA THERAPEUTICS INC.-SRP2024-004237

PATIENT
  Age: 20 Year
  Sex: Male

DRUGS (1)
  1. ETEPLIRSEN [Suspect]
     Active Substance: ETEPLIRSEN
     Indication: Muscular dystrophy
     Dosage: 2100 MILLIGRAM, WEEKLY
     Route: 042
     Dates: start: 20170101

REACTIONS (4)
  - Hypotension [Recovering/Resolving]
  - Thyroid disorder [Recovering/Resolving]
  - Heart rate increased [Recovering/Resolving]
  - Urinary tract infection [Recovering/Resolving]

NARRATIVE: CASE EVENT DATE: 20240101
